FAERS Safety Report 19846494 (Version 3)
Quarter: 2021Q4

REPORT INFORMATION
  Report Type: Spontaneous
  Country: US (occurrence: US)
  Receive Date: 20210917
  Receipt Date: 20211005
  Transmission Date: 20220304
  Serious: Yes (Other)
  Sender: FDA-Public Use
  Company Number: US-JNJFOC-20210921889

PATIENT
  Sex: Male

DRUGS (1)
  1. TITANIUM DIOXIDE\ZINC OXIDE [Suspect]
     Active Substance: TITANIUM DIOXIDE\ZINC OXIDE
     Indication: Prophylaxis against solar radiation
     Dosage: APPLIED LIBERALLY AND USED IN THE SKIN TO OVER AS THE DIRECTIONS SAID USED EVERY SUMMER OF THE YEAR,
     Route: 061

REACTIONS (2)
  - Malignant melanoma [Recovered/Resolved]
  - Plasmacytoma [Recovered/Resolved]
